FAERS Safety Report 23021820 (Version 1)
Quarter: 2023Q4

REPORT INFORMATION
  Report Type: Spontaneous
  Country: CA (occurrence: CA)
  Receive Date: 20231003
  Receipt Date: 20231003
  Transmission Date: 20240110
  Serious: Yes (Other)
  Sender: FDA-Public Use
  Company Number: CA-PFIZER INC-202300308777

PATIENT
  Age: 42 Year
  Sex: Male
  Weight: 102 kg

DRUGS (6)
  1. METHYLPREDNISOLONE [Suspect]
     Active Substance: METHYLPREDNISOLONE
     Indication: Premedication
     Dosage: UNK
  2. METHOTREXATE [Concomitant]
     Active Substance: METHOTREXATE
     Dosage: 1 DF (DOSAGE INFO: UNKNOWN)
     Route: 065
     Dates: start: 2017
  3. PREDNISONE [Concomitant]
     Active Substance: PREDNISONE
     Dosage: 1 DF
     Route: 065
     Dates: start: 2017
  4. RITUXIMAB [Concomitant]
     Active Substance: RITUXIMAB
     Indication: Granulomatosis with polyangiitis
     Dosage: 800 MG, WEEKLY (FOUR DOSES)
     Route: 042
     Dates: start: 20220706, end: 20220823
  5. RITUXIMAB [Concomitant]
     Active Substance: RITUXIMAB
     Dosage: 500 MG, EVERY 2 WEEKS
     Route: 042
     Dates: start: 20230302, end: 20230316
  6. RITUXIMAB [Concomitant]
     Active Substance: RITUXIMAB
     Dosage: 1 DF (DOSE NOT SPECIFIED SINCE INFUSION NOT COMPLETED)
     Route: 042
     Dates: start: 20230921, end: 20230921

REACTIONS (2)
  - Visual impairment [Unknown]
  - Blood glucose abnormal [Unknown]
